FAERS Safety Report 4612641-7 (Version None)
Quarter: 2005Q1

REPORT INFORMATION
  Report Type: 
  Country: None (occurrence: None)
  Receive Date: 20050316
  Receipt Date: 20050316
  Transmission Date: 20050727
  Serious: Yes (Life-Threatening, Hospitalization)
  Sender: FDA-Public Use
  Company Number: None

PATIENT
  Age: 30 Year
  Sex: Male
  Weight: 52.1637 kg

DRUGS (1)
  1. LARIAM [Suspect]
     Indication: MALARIA PROPHYLAXIS
     Dosage: 1 WEEK ORAL
     Route: 048
     Dates: start: 20040501, end: 20040501

REACTIONS (12)
  - ABNORMAL BEHAVIOUR [None]
  - AGGRESSION [None]
  - ANXIETY [None]
  - DISTURBANCE IN SOCIAL BEHAVIOUR [None]
  - EMOTIONAL DISORDER [None]
  - FEELING OF DESPAIR [None]
  - MENTAL DISORDER [None]
  - POLYTRAUMATISM [None]
  - PSYCHOTIC DISORDER [None]
  - SELF INJURIOUS BEHAVIOUR [None]
  - SUICIDAL IDEATION [None]
  - THINKING ABNORMAL [None]
